FAERS Safety Report 5303740-5 (Version None)
Quarter: 2007Q2

REPORT INFORMATION
  Report Type: 
  Country: None (occurrence: None)
  Receive Date: 20070420
  Receipt Date: 20070409
  Transmission Date: 20071010
  Serious: Yes (Hospitalization)
  Sender: FDA-Public Use
  Company Number: CG-MERCK-0704USA01395

PATIENT
  Age: 35 Year
  Sex: Male
  Weight: 62 kg

DRUGS (1)
  1. MECTIZAN [Suspect]
     Route: 065
     Dates: start: 20070120

REACTIONS (8)
  - ABDOMINAL PAIN [None]
  - AGITATION [None]
  - ASTHENIA [None]
  - COMA [None]
  - HEADACHE [None]
  - HYPOTENSION [None]
  - NECK PAIN [None]
  - VOMITING [None]
